FAERS Safety Report 12624758 (Version 1)
Quarter: 2016Q3

REPORT INFORMATION
  Report Type: Spontaneous
  Country: IT (occurrence: IT)
  Receive Date: 20160805
  Receipt Date: 20160805
  Transmission Date: 20161109
  Serious: Yes (Hospitalization)
  Sender: FDA-Public Use
  Company Number: IT-TEVA-679298ACC

PATIENT
  Age: 34 Year
  Sex: Female

DRUGS (2)
  1. CABERGOLINE. [Suspect]
     Active Substance: CABERGOLINE
     Indication: PROLACTIN-PRODUCING PITUITARY TUMOUR
     Route: 048
     Dates: start: 201306, end: 2013
  2. CABERGOLINE. [Suspect]
     Active Substance: CABERGOLINE
     Route: 048
     Dates: start: 201310

REACTIONS (11)
  - Aggression [Recovering/Resolving]
  - Psychomotor hyperactivity [Recovering/Resolving]
  - Condition aggravated [Recovering/Resolving]
  - Insomnia [Recovering/Resolving]
  - Flight of ideas [Unknown]
  - Paranoid personality disorder [Recovering/Resolving]
  - Irritability [Recovering/Resolving]
  - Mania [Recovering/Resolving]
  - Apathy [Unknown]
  - Disinhibition [Recovering/Resolving]
  - Depressed mood [Unknown]
